FAERS Safety Report 7859963-4 (Version None)
Quarter: 2011Q4

REPORT INFORMATION
  Report Type: 
  Country: None (occurrence: None)
  Receive Date: 20111026
  Receipt Date: 20111026
  Transmission Date: 20120403
  Serious: No
  Sender: FDA-Public Use
  Company Number: None

PATIENT
  Sex: Female

DRUGS (7)
  1. SENSIPAR [Concomitant]
  2. LASIX [Concomitant]
  3. ZOCOR [Concomitant]
  4. ALLOPURINOL [Concomitant]
  5. LETAIRIS [Suspect]
     Indication: PULMONARY ARTERIAL HYPERTENSION
     Dosage: 10MG DAILY ORALLY
     Route: 048
     Dates: start: 20110501, end: 20110701
  6. ALPRAZOLAM [Concomitant]
  7. PROTONIXLEVOTHYROID [Concomitant]

REACTIONS (1)
  - DRUG INEFFECTIVE [None]
